FAERS Safety Report 6273218-3 (Version None)
Quarter: 2009Q3

REPORT INFORMATION
  Report Type: 
  Country: None (occurrence: None)
  Receive Date: 20090715
  Receipt Date: 20090630
  Transmission Date: 20100115
  Serious: Yes (Hospitalization)
  Sender: FDA-Public Use
  Company Number: B0582666A

PATIENT
  Age: 36 Year
  Sex: Male

DRUGS (9)
  1. LAMIVUDINE [Suspect]
     Indication: HIV INFECTION
  2. RETROVIR [Suspect]
     Indication: HIV INFECTION
  3. EFAVIRENZ [Suspect]
     Indication: HIV INFECTION
  4. STAVUDINE [Suspect]
     Indication: HIV INFECTION
  5. DIDANOSINE [Suspect]
     Indication: HIV INFECTION
  6. NELFINAVIR MESYLATE (FORMULATION UNKNOWN) (NELFINAVIR MESYLATE) [Suspect]
     Indication: HIV INFECTION
  7. OFLOXACIN (FORMULATION UNKNOWN) (OFLOXACIN) [Suspect]
     Indication: COUGH
     Dosage: PARENTERAL
     Route: 051
  8. CIPROFLOXACIN [Suspect]
     Indication: COUGH
  9. COTRIM [Concomitant]

REACTIONS (9)
  - CHOKING [None]
  - CHOLECYSTITIS ACUTE [None]
  - GENERAL PHYSICAL HEALTH DETERIORATION [None]
  - IMMUNE RECONSTITUTION SYNDROME [None]
  - RASH MACULO-PAPULAR [None]
  - RESPIRATORY DISTRESS [None]
  - THROMBOCYTOPENIA [None]
  - TREATMENT FAILURE [None]
  - TUBERCULOSIS [None]
